FAERS Safety Report 5052791-7 (Version None)
Quarter: 2006Q3

REPORT INFORMATION
  Report Type: 
  Country: None (occurrence: None)
  Receive Date: 20060712
  Receipt Date: 20060712
  Transmission Date: 20061208
  Serious: Yes (Other)
  Sender: FDA-Public Use
  Company Number: None

PATIENT
  Age: 72 Year
  Sex: Male
  Weight: 95.3 kg

DRUGS (1)
  1. TRAVOPROST [Suspect]
     Indication: GLAUCOMA
     Dosage: ONE DROP,  RT EYE H, OPHTHALM
     Route: 047
     Dates: start: 20060626, end: 20060629

REACTIONS (1)
  - CONJUNCTIVAL OEDEMA [None]
